FAERS Safety Report 13126694 (Version 1)
Quarter: 2017Q1

REPORT INFORMATION
  Report Type: Spontaneous
  Country: US (occurrence: US)
  Receive Date: 20170118
  Receipt Date: 20170118
  Transmission Date: 20170428
  Serious: Yes (Hospitalization)
  Sender: FDA-Public Use
  Company Number: US-ROCHE-1717962

PATIENT
  Sex: Male

DRUGS (3)
  1. RITUXAN [Suspect]
     Active Substance: RITUXIMAB
     Dosage: 500MG/50ML
     Route: 042
  2. RITUXAN [Suspect]
     Active Substance: RITUXIMAB
     Indication: LYMPHOMA
     Dosage: STARTED AT 50 MG/HOUR, THEN INCREASED TO 100 MG/HR
     Route: 042
     Dates: start: 20160222
  3. RITUXAN [Suspect]
     Active Substance: RITUXIMAB
     Dosage: 100MG/10ML
     Route: 042

REACTIONS (3)
  - Chest pain [Unknown]
  - Chills [Unknown]
  - Product quality issue [Unknown]
